FAERS Safety Report 7428070-7 (Version None)
Quarter: 2011Q2

REPORT INFORMATION
  Report Type: 
  Country: None (occurrence: None)
  Receive Date: 20110421
  Receipt Date: 20110411
  Transmission Date: 20111010
  Serious: Yes (Hospitalization)
  Sender: FDA-Public Use
  Company Number: 2005BI017851

PATIENT
  Age: 57 Year
  Sex: Male

DRUGS (6)
  1. KLOR-CON [Concomitant]
  2. IRON TABLET [Concomitant]
  3. AVONEX [Suspect]
     Route: 030
     Dates: start: 20030822
  4. BACLOFEN [Concomitant]
  5. AVONEX [Suspect]
     Indication: MULTIPLE SCLEROSIS
     Route: 030
     Dates: start: 19980701
  6. HYDROCODONE [Concomitant]

REACTIONS (9)
  - FALL [None]
  - DIABETES MELLITUS [None]
  - HIP FRACTURE [None]
  - BLOOD CHOLESTEROL INCREASED [None]
  - HERNIA [None]
  - INTESTINAL OBSTRUCTION [None]
  - ARTHROPATHY [None]
  - OEDEMA PERIPHERAL [None]
  - GLAUCOMA [None]
